FAERS Safety Report 8183558-9 (Version None)
Quarter: 2012Q1

REPORT INFORMATION
  Report Type: 
  Country: None (occurrence: None)
  Receive Date: 20120130
  Receipt Date: 20110908
  Transmission Date: 20120608
  Serious: Yes (Hospitalization)
  Sender: FDA-Public Use
  Company Number: 041006

PATIENT
  Sex: Female

DRUGS (1)
  1. KEPPRA [Suspect]
     Indication: CONVULSION
     Dosage: DOSE INCREASED

REACTIONS (3)
  - THERAPY REGIMEN CHANGED [None]
  - ACUTE PSYCHOSIS [None]
  - DRUG INEFFECTIVE [None]
